FAERS Safety Report 23862874 (Version 4)
Quarter: 2024Q4

REPORT INFORMATION
  Report Type: Spontaneous
  Country: IT (occurrence: IT)
  Receive Date: 20240516
  Receipt Date: 20241113
  Transmission Date: 20250115
  Serious: Yes (Other)
  Sender: PFIZER
  Company Number: None

PATIENT
  Age: 66 Year
  Sex: Male

DRUGS (8)
  1. BEVACIZUMAB [Suspect]
     Active Substance: BEVACIZUMAB
     Dosage: 1 DF INTRAVITREAL ADMINISTRATION RIGHT EYE
     Route: 031
     Dates: start: 20230314, end: 20230314
  2. BEVACIZUMAB [Suspect]
     Active Substance: BEVACIZUMAB
     Dosage: 1 DF INTRAVITREAL ADMINISTRATION RIGHT EYE
     Route: 031
     Dates: start: 20230421, end: 20230421
  3. BEVACIZUMAB [Suspect]
     Active Substance: BEVACIZUMAB
     Dosage: 1 DF INTRAVITREAL ADMINISTRATION RIGHT EYE
     Route: 031
     Dates: start: 20230523, end: 20230523
  4. BEVACIZUMAB [Suspect]
     Active Substance: BEVACIZUMAB
     Dosage: 1 DF INTRAVITREAL ADMINISTRATION RIGHT EYE
     Route: 031
     Dates: start: 20230804, end: 20230804
  5. BEVACIZUMAB [Suspect]
     Active Substance: BEVACIZUMAB
     Dosage: 1 DF INTRAVITREAL ADMINISTRATION RIGHT EYE
     Route: 031
     Dates: start: 20230908, end: 20230908
  6. BEVACIZUMAB [Suspect]
     Active Substance: BEVACIZUMAB
     Dosage: 1 DF INTRAVITREAL ADMINISTRATION RIGHT EYE
     Route: 031
     Dates: start: 20231013, end: 20231013
  7. BEVACIZUMAB [Suspect]
     Active Substance: BEVACIZUMAB
     Dosage: 1 DF INTRAVITREAL ADMINISTRATION RIGHT EYE
     Route: 031
     Dates: start: 20240112, end: 20240112
  8. BEVACIZUMAB [Suspect]
     Active Substance: BEVACIZUMAB
     Dosage: 1 DF INTRAVITREAL ADMINISTRATION RIGHT EYE
     Route: 031
     Dates: start: 20240215, end: 20240215

REACTIONS (4)
  - Macular degeneration [Recovering/Resolving]
  - Therapy non-responder [Recovering/Resolving]
  - Off label use [Unknown]
  - Therapeutic response unexpected [Unknown]

NARRATIVE: CASE EVENT DATE: 20230314
